FAERS Safety Report 15791457 (Version 2)
Quarter: 2020Q1

REPORT INFORMATION
  Report Type: Spontaneous
  Country: US (occurrence: US)
  Receive Date: 20190104
  Receipt Date: 20200212
  Transmission Date: 20200409
  Serious: Yes (Death)
  Sender: FDA-Public Use
  Company Number: US-VIFOR (INTERNATIONAL) INC.-VIT-2019-00014

PATIENT
  Age: 61 Year
  Sex: Female

DRUGS (9)
  1. VELTASSA [Suspect]
     Active Substance: PATIROMER
     Indication: HYPERKALAEMIA
     Route: 048
     Dates: start: 20181218
  2. FENTANYL CITRATE. [Concomitant]
     Active Substance: FENTANYL CITRATE
  3. FUROSEMIDE. [Concomitant]
     Active Substance: FUROSEMIDE
  4. ACETAMINOPHEN. [Concomitant]
     Active Substance: ACETAMINOPHEN
  5. METOPROLOL TARTRATE. [Concomitant]
     Active Substance: METOPROLOL TARTRATE
  6. ONDANSETRON [Concomitant]
     Active Substance: ONDANSETRON
  7. VELTASSA [Suspect]
     Active Substance: PATIROMER
     Route: 048
  8. LORAZEPAM. [Concomitant]
     Active Substance: LORAZEPAM
  9. BASAGLAR KWIKPEN [Concomitant]
     Active Substance: INSULIN GLARGINE

REACTIONS (2)
  - Death [Fatal]
  - Intentional dose omission [Unknown]

NARRATIVE: CASE EVENT DATE: 20181224
